FAERS Safety Report 7376174-X (Version None)
Quarter: 2011Q1

REPORT INFORMATION
  Report Type: 
  Country: None (occurrence: None)
  Receive Date: 20110325
  Receipt Date: 20110323
  Transmission Date: 20110831
  Serious: Yes (Other)
  Sender: FDA-Public Use
  Company Number: DE-ABBOTT-10P-062-0689655-00

PATIENT
  Sex: Female
  Weight: 80 kg

DRUGS (5)
  1. SYSTEMIC GLUCOCORTICOIDS [Concomitant]
     Indication: PRODUCT USED FOR UNKNOWN INDICATION
  2. HCQ/CQ [Concomitant]
     Indication: PRODUCT USED FOR UNKNOWN INDICATION
  3. NON SELECTIVE NSAIDS [Concomitant]
     Indication: PRODUCT USED FOR UNKNOWN INDICATION
  4. RTX [Concomitant]
     Indication: PRODUCT USED FOR UNKNOWN INDICATION
  5. HUMIRA [Suspect]
     Indication: RHEUMATOID ARTHRITIS
     Dates: start: 20060801, end: 20100901

REACTIONS (1)
  - PLASMACYTOMA [None]
